FAERS Safety Report 8539876 (Version 5)
Quarter: 2013Q2

REPORT INFORMATION
  Report Type: Spontaneous
  Country: US (occurrence: US)
  Receive Date: 20120502
  Receipt Date: 20130520
  Transmission Date: 20140414
  Serious: Yes (Hospitalization, Other)
  Sender: FDA-Public Use
  Company Number: US-PFIZER INC-2011205825

PATIENT
  Age: 89 Year
  Sex: Female

DRUGS (3)
  1. IBUPROFEN [Suspect]
     Indication: PAIN
     Dosage: UNK
     Route: 048
  2. CORDARONE [Suspect]
     Indication: CARDIAC DISORDER
     Dosage: 200 MG, 1X/DAY
     Route: 048
     Dates: start: 1999
  3. LIPITOR [Suspect]
     Dosage: UNK

REACTIONS (8)
  - Hypoacusis [Unknown]
  - Blindness [Unknown]
  - Glaucoma [Unknown]
  - Drug hypersensitivity [Unknown]
  - Malaise [Unknown]
  - Dizziness [Unknown]
  - Swollen tongue [Unknown]
  - Headache [Unknown]
